FAERS Safety Report 25116090 (Version 1)
Quarter: 2025Q1

REPORT INFORMATION
  Report Type: Spontaneous
  Country: JP (occurrence: JP)
  Receive Date: 20250325
  Receipt Date: 20250325
  Transmission Date: 20250408
  Serious: Yes (Other)
  Sender: AMGEN
  Company Number: JP-DSJP-DS-2025-130315-

PATIENT

DRUGS (1)
  1. DENOSUMAB [Suspect]
     Active Substance: DENOSUMAB
     Indication: Osteoporosis
     Dosage: 60 MG, ONCE EVERY 6 MO
     Route: 058
     Dates: start: 20240912, end: 20250313

REACTIONS (6)
  - Osteonecrosis [Unknown]
  - Trismus [Unknown]
  - Pain in extremity [Unknown]
  - Hip deformity [Unknown]
  - Spinal osteoarthritis [Unknown]
  - Pelvic misalignment [Unknown]

NARRATIVE: CASE EVENT DATE: 20240913
